FAERS Safety Report 7989375-4 (Version None)
Quarter: 2011Q4

REPORT INFORMATION
  Report Type: 
  Country: None (occurrence: None)
  Receive Date: 20111219
  Receipt Date: 20111207
  Transmission Date: 20120403
  Serious: Yes (Other)
  Sender: FDA-Public Use
  Company Number: US-JNJFOC-20111203924

PATIENT
  Sex: Male
  Weight: 167.83 kg

DRUGS (3)
  1. ATENOLOL [Concomitant]
     Indication: BLOOD PRESSURE
     Route: 048
     Dates: start: 20060101
  2. REMICADE [Suspect]
     Indication: PSORIASIS
     Route: 042
     Dates: start: 20111026
  3. REMICADE [Suspect]
     Route: 042
     Dates: start: 20070101, end: 20110601

REACTIONS (2)
  - HERNIA [None]
  - THERAPEUTIC RESPONSE DECREASED [None]
